FAERS Safety Report 4278086-7 (Version None)
Quarter: 2004Q1

REPORT INFORMATION
  Report Type: 
  Country: None (occurrence: None)
  Receive Date: 20040121
  Receipt Date: 20030814
  Transmission Date: 20041129
  Serious: Yes (Other)
  Sender: FDA-Public Use
  Company Number: 2003-08-1227

PATIENT
  Age: 22 Year
  Sex: Female

DRUGS (1)
  1. SUBUTEX [Suspect]
     Dosage: 6 MG

REACTIONS (2)
  - HYPOAESTHESIA [None]
  - PARAESTHESIA [None]
